FAERS Safety Report 10577145 (Version 2)
Quarter: 2014Q4

REPORT INFORMATION
  Report Type: Spontaneous
  Country: BR (occurrence: BR)
  Receive Date: 20141111
  Receipt Date: 20141226
  Transmission Date: 20150529
  Serious: Yes (Other)
  Sender: FDA-Public Use
  Company Number: BR-PFIZER INC-2014306791

PATIENT
  Age: 74 Year
  Sex: Male
  Weight: 89 kg

DRUGS (5)
  1. OMEPRAZOLE. [Concomitant]
     Active Substance: OMEPRAZOLE
     Indication: GASTRIC DISORDER
     Dosage: UNK
  2. LOSARTAN [Concomitant]
     Active Substance: LOSARTAN
     Indication: HYPERTENSION
     Dosage: UNSPECIFIED DOSAGE, 2X/DAY (EVERY 12 HOURS)
     Dates: start: 2010
  3. CILOSTAZOL. [Concomitant]
     Active Substance: CILOSTAZOL
     Indication: VITAMIN SUPPLEMENTATION
     Dosage: UNK
  4. DETRUSITOL LA [Suspect]
     Active Substance: TOLTERODINE TARTRATE
     Indication: BACTERIAL INFECTION
     Dosage: 4 MG, DAILY
     Route: 048
     Dates: start: 20140805
  5. SIMVASTATIN. [Concomitant]
     Active Substance: SIMVASTATIN
     Indication: BLOOD CHOLESTEROL
     Dosage: UNK

REACTIONS (3)
  - Hypertension [Unknown]
  - Ear haemorrhage [Recovered/Resolved]
  - Nervousness [Unknown]

NARRATIVE: CASE EVENT DATE: 2014
